FAERS Safety Report 9551944 (Version 2)
Quarter: 2013Q3

REPORT INFORMATION
  Report Type: Spontaneous
  Country: US (occurrence: None)
  Receive Date: 20130923
  Receipt Date: 20130926
  Transmission Date: 20140515
  Serious: Yes (Hospitalization, Other)
  Sender: FDA-Public Use
  Company Number: ADR-2013-01668

PATIENT
  Age: 33 Year
  Sex: Male

DRUGS (2)
  1. BACLOFEN [Suspect]
     Indication: MUSCLE SPASTICITY
  2. BACLOFEN [Suspect]

REACTIONS (9)
  - Withdrawal syndrome [None]
  - Feeling abnormal [None]
  - Skin odour abnormal [None]
  - Neglect of personal appearance [None]
  - Skin lesion [None]
  - Agitation [None]
  - Mental disorder [None]
  - Muscle spasticity [None]
  - Laceration [None]
